FAERS Safety Report 5142328-6 (Version None)
Quarter: 2006Q4

REPORT INFORMATION
  Report Type: 
  Country: None (occurrence: None)
  Receive Date: 20061030
  Receipt Date: 20061030
  Transmission Date: 20070319
  Serious: Yes (Other)
  Sender: FDA-Public Use
  Company Number: None

PATIENT
  Age: 37 Year
  Sex: Male
  Weight: 81.6475 kg

DRUGS (1)
  1. GABAPENTIN [Suspect]
     Indication: PRURITUS
     Dosage: 300MG  TID

REACTIONS (1)
  - PRURITUS GENERALISED [None]
